FAERS Safety Report 7016976-2 (Version None)
Quarter: 2010Q3

REPORT INFORMATION
  Report Type: 
  Country: None (occurrence: None)
  Receive Date: 20100927
  Receipt Date: 20100915
  Transmission Date: 20110219
  Serious: Yes (Other)
  Sender: FDA-Public Use
  Company Number: FR-PFIZER INC-2010120170

PATIENT
  Age: 57 Year
  Sex: Male

DRUGS (3)
  1. VFEND [Suspect]
  2. ZYVOX [Suspect]
  3. CASPOFUNGIN ^MSD^ [Concomitant]

REACTIONS (1)
  - HEPATITIS [None]
